FAERS Safety Report 6720392-8 (Version None)
Quarter: 2010Q2

REPORT INFORMATION
  Report Type: 
  Country: None (occurrence: None)
  Receive Date: 20100511
  Receipt Date: 20100503
  Transmission Date: 20101027
  Serious: Yes (Other)
  Sender: FDA-Public Use
  Company Number: CA-PFIZER INC-2010047210

PATIENT
  Age: 56 Year
  Sex: Female

DRUGS (2)
  1. LIPITOR [Suspect]
     Indication: BLOOD CHOLESTEROL INCREASED
     Dosage: 10 MG, UNK
     Dates: start: 20100227, end: 20100409
  2. ATACAND [Concomitant]
     Dosage: UNK

REACTIONS (8)
  - BLOOD PRESSURE INCREASED [None]
  - DEPRESSED MOOD [None]
  - FATIGUE [None]
  - LETHARGY [None]
  - PAIN [None]
  - SOMNOLENCE [None]
  - SUICIDAL IDEATION [None]
  - VISION BLURRED [None]
